FAERS Safety Report 21404865 (Version 1)
Quarter: 2022Q3

REPORT INFORMATION
  Report Type: Spontaneous
  Country: US (occurrence: None)
  Receive Date: 20220930
  Receipt Date: 20220930
  Transmission Date: 20221027
  Serious: Yes (Hospitalization)
  Sender: FDA-Public Use
  Company Number: None

PATIENT
  Age: 77 Year
  Sex: Male
  Weight: 59 kg

DRUGS (2)
  1. APIXABAN [Suspect]
     Active Substance: APIXABAN
     Indication: Portal vein thrombosis
     Dosage: 5 MG BID
     Dates: start: 20220125
  2. APIXABAN [Suspect]
     Active Substance: APIXABAN
     Indication: Metastasis

REACTIONS (4)
  - Colitis ischaemic [None]
  - Haematochezia [None]
  - Haematemesis [None]
  - Mucosal erosion [None]

NARRATIVE: CASE EVENT DATE: 20220601
